FAERS Safety Report 14874005 (Version 1)
Quarter: 2018Q2

REPORT INFORMATION
  Report Type: Spontaneous
  Country: US (occurrence: US)
  Receive Date: 20180424
  Receipt Date: 20180424
  Transmission Date: 20180711
  Serious: Yes (Life-Threatening, Hospitalization)
  Sender: FDA-Public Use
  Company Number: None

PATIENT
  Age: 16 Month
  Sex: Female
  Weight: 8.7 kg

DRUGS (1)
  1. LET GEL KIT (LIDOCAINE 4% EPINEPHRINE 0.8% TETRACAINE 0.5%) [Suspect]
     Active Substance: EPINEPHRINE\LIDOCAINE\TETRACAINE
     Indication: THERMAL BURN
     Route: 061
     Dates: start: 20180311

REACTIONS (5)
  - Vomiting [None]
  - Acute respiratory failure [None]
  - Apnoea [None]
  - Cyanosis [None]
  - General symptom [None]

NARRATIVE: CASE EVENT DATE: 20180311
